FAERS Safety Report 6573397-4 (Version None)
Quarter: 2010Q1

REPORT INFORMATION
  Report Type: 
  Country: None (occurrence: None)
  Receive Date: 20100208
  Receipt Date: 20100129
  Transmission Date: 20100710
  Serious: Yes (Other)
  Sender: FDA-Public Use
  Company Number: US-PFIZER INC-2010014026

PATIENT
  Sex: Female

DRUGS (2)
  1. DEPO-PROVERA [Suspect]
     Indication: CONTRACEPTION
     Dates: start: 20091218
  2. DEPO-PROVERA [Suspect]
     Indication: MENSTRUAL DISCOMFORT

REACTIONS (13)
  - ANAEMIA [None]
  - ANXIETY [None]
  - BACK PAIN [None]
  - BONE PAIN [None]
  - CONDITION AGGRAVATED [None]
  - DRUG INEFFECTIVE [None]
  - DYSMENORRHOEA [None]
  - KIDNEY ENLARGEMENT [None]
  - LIBIDO DECREASED [None]
  - MENORRHAGIA [None]
  - MOOD SWINGS [None]
  - THYROID DISORDER [None]
  - UNINTENDED PREGNANCY [None]
